FAERS Safety Report 15453234 (Version 4)
Quarter: 2019Q2

REPORT INFORMATION
  Report Type: Spontaneous
  Country: US (occurrence: US)
  Receive Date: 20181001
  Receipt Date: 20190424
  Transmission Date: 20190711
  Serious: Yes (Hospitalization, Other)
  Sender: FDA-Public Use
  Company Number: US-PFIZER INC-2018386555

PATIENT
  Age: 42 Year
  Sex: Female
  Weight: 86.2 kg

DRUGS (12)
  1. KEFLEX [Interacting]
     Active Substance: CEPHALEXIN
     Dosage: 75 MG, 2X/DAY
     Route: 048
     Dates: start: 20180613, end: 201806
  2. TRAZODONE [Concomitant]
     Active Substance: TRAZODONE HYDROCHLORIDE
     Dosage: 100 MG, 1X/DAY
     Route: 048
     Dates: start: 201704
  3. PARACETAMOL [Concomitant]
     Active Substance: ACETAMINOPHEN
     Dosage: UNK
  4. EFFEXOR XR [Interacting]
     Active Substance: VENLAFAXINE HYDROCHLORIDE
     Dosage: 300 MG, 1X/DAY (TWO 150MG TABLETS ONCE DAILY BY MOUTH)
     Route: 048
  5. KEFLEX [Interacting]
     Active Substance: CEPHALEXIN
     Indication: SOFT TISSUE INFECTION
     Dosage: UNK, 2X/DAY (1 RED PILL TWICE DAILY BY MOUTH)
     Route: 048
     Dates: start: 20180613
  6. BUSPIRONE [Concomitant]
     Active Substance: BUSPIRONE HYDROCHLORIDE
     Indication: ANXIETY
     Dosage: 15 MG, 3X/DAY
     Route: 048
     Dates: start: 201704
  7. TRAZODONE [Concomitant]
     Active Substance: TRAZODONE HYDROCHLORIDE
     Indication: INSOMNIA
     Dosage: 200 MG, 1X/DAY (2 TABLETS ONCE DAILY BY MOUTH AT NIGHT)
     Route: 048
     Dates: start: 201704
  8. KEFLEX [Interacting]
     Active Substance: CEPHALEXIN
     Dosage: 1 DF, 2X/DAY
     Route: 048
     Dates: start: 20180313, end: 201806
  9. ALBUTEROL [SALBUTAMOL] [Concomitant]
     Active Substance: ALBUTEROL
     Indication: RESPIRATION ABNORMAL
     Dosage: UNK
     Dates: start: 2015
  10. EFFEXOR XR [Suspect]
     Active Substance: VENLAFAXINE HYDROCHLORIDE
     Indication: DEPRESSION
     Dosage: 225 MG, 1X/DAY (3 TABLETS DAILY BY MOUTH)
     Route: 048
     Dates: start: 201704
  11. MELOXICAM. [Concomitant]
     Active Substance: MELOXICAM
     Dosage: UNK
  12. EFFEXOR XR [Interacting]
     Active Substance: VENLAFAXINE HYDROCHLORIDE
     Dosage: 350 MG, UNK

REACTIONS (8)
  - Suicide attempt [Unknown]
  - Schizophrenia [Not Recovered/Not Resolved]
  - Hallucination, auditory [Recovered/Resolved]
  - Memory impairment [Not Recovered/Not Resolved]
  - Drug interaction [Recovered/Resolved]
  - Depression [Recovering/Resolving]
  - Crying [Not Recovered/Not Resolved]
  - Paranoia [Not Recovered/Not Resolved]

NARRATIVE: CASE EVENT DATE: 201806
